FAERS Safety Report 8355889-0 (Version None)
Quarter: 2012Q2

REPORT INFORMATION
  Report Type: 
  Country: None (occurrence: None)
  Receive Date: 20120510
  Receipt Date: 20120425
  Transmission Date: 20120825
  Serious: Yes (Hospitalization)
  Sender: FDA-Public Use
  Company Number: 2012AP001188

PATIENT
  Age: 65 Year
  Sex: Female

DRUGS (8)
  1. AMLODIPINE [Suspect]
     Indication: HYPERTENSION
     Dosage: 5 MG; QD; PO
     Route: 048
  2. ASPIRIN [Concomitant]
  3. BETA BLOCKING AGENTS AGENT (BETA BLOCKING AGENTS) [Concomitant]
  4. ATORVASTATIN [Concomitant]
  5. GAVISON ADVANCE (GAVISON ADVANCE) [Concomitant]
  6. OMEPRAZOLE [Concomitant]
  7. VENTOLIN [Concomitant]
  8. COLECALCIFEROL (COLECALCIFEROL) [Concomitant]

REACTIONS (3)
  - HYPOTENSION [None]
  - JOINT SWELLING [None]
  - FALL [None]
